FAERS Safety Report 5989897-1 (Version None)
Quarter: 2008Q4

REPORT INFORMATION
  Report Type: 
  Country: None (occurrence: None)
  Receive Date: 20081209
  Receipt Date: 20081128
  Transmission Date: 20090506
  Serious: Yes (Death)
  Sender: FDA-Public Use
  Company Number: GXKR2008JP11384

PATIENT
  Age: 18 Year
  Sex: Female

DRUGS (3)
  1. CYTARABINE [Suspect]
     Indication: CENTRAL NERVOUS SYSTEM LEUKAEMIA
     Dosage: 40 MG, INTRATHECAL
     Route: 037
  2. METHOTREXATE [Suspect]
     Indication: CENTRAL NERVOUS SYSTEM LEUKAEMIA
     Dosage: 15 MG, INTRATHECAL
     Route: 037
  3. HYDROCORTISONE [Suspect]
     Indication: CENTRAL NERVOUS SYSTEM LEUKAEMIA
     Dosage: 50 MG, INTRATHECAL
     Route: 039

REACTIONS (5)
  - ANURIA [None]
  - AZOTAEMIA [None]
  - CARDIAC FAILURE CONGESTIVE [None]
  - OLIGURIA [None]
  - TUMOUR LYSIS SYNDROME [None]
